FAERS Safety Report 6165542-X (Version None)
Quarter: 2009Q2

REPORT INFORMATION
  Report Type: 
  Country: None (occurrence: None)
  Receive Date: 20090421
  Receipt Date: 20090421
  Transmission Date: 20091009
  Serious: Yes (Other)
  Sender: FDA-Public Use
  Company Number: None

PATIENT
  Age: 54 Year
  Sex: Female
  Weight: 58.9676 kg

DRUGS (1)
  1. ALENDRONATE SODIUM [Suspect]
     Indication: RESORPTION BONE INCREASED
     Dosage: 1 PILL WEEKLY PO
     Route: 048
     Dates: start: 20090225, end: 20090310

REACTIONS (3)
  - ARTHRALGIA [None]
  - OEDEMA PERIPHERAL [None]
  - PAIN IN EXTREMITY [None]
